FAERS Safety Report 7377972-9 (Version None)
Quarter: 2011Q1

REPORT INFORMATION
  Report Type: 
  Country: None (occurrence: None)
  Receive Date: 20110328
  Receipt Date: 20110323
  Transmission Date: 20110831
  Serious: Yes (Other)
  Sender: FDA-Public Use
  Company Number: DE-PFIZER INC-2011065209

PATIENT
  Age: 82 Year
  Sex: Female

DRUGS (2)
  1. ELTROXIN [Interacting]
     Indication: HYPOTHYROIDISM
     Dosage: UNK
     Dates: start: 20110309
  2. SORTIS [Suspect]
     Dosage: 10 MG, UNK

REACTIONS (3)
  - DRUG INTERACTION [None]
  - MYALGIA [None]
  - BLOOD CREATINE PHOSPHOKINASE INCREASED [None]
